FAERS Safety Report 25787404 (Version 2)
Quarter: 2025Q3

REPORT INFORMATION
  Report Type: Spontaneous
  Country: EG (occurrence: EG)
  Receive Date: 20250910
  Receipt Date: 20250926
  Transmission Date: 20251020
  Serious: No
  Sender: NOVO NORDISK
  Company Number: EG-NOVOPROD-1515396

PATIENT
  Age: 691 Month
  Sex: Female
  Weight: 52 kg

DRUGS (1)
  1. INSULIN HUMAN [Suspect]
     Active Substance: INSULIN HUMAN
     Indication: Type 2 diabetes mellitus
     Dosage: 23 IU, QD (10 U MORNING, 5 U AT NOON AND 8 U/NIGHT)
     Route: 058

REACTIONS (1)
  - Hyperglycaemia [Not Recovered/Not Resolved]

NARRATIVE: CASE EVENT DATE: 20250705
